FAERS Safety Report 15684053 (Version 1)
Quarter: 2018Q4

REPORT INFORMATION
  Report Type: Spontaneous
  Country: US (occurrence: US)
  Receive Date: 20181204
  Receipt Date: 20181204
  Transmission Date: 20190205
  Serious: No
  Sender: FDA-Public Use
  Company Number: US-AUROBINDO-AUR-APL-2017-43263

PATIENT
  Age: 80 Year
  Sex: Male

DRUGS (1)
  1. TORSEMIDE TABLETS 20 MG [Suspect]
     Active Substance: TORSEMIDE
     Indication: PRODUCT USED FOR UNKNOWN INDICATION
     Dosage: UNK
     Route: 065

REACTIONS (5)
  - Dysuria [Unknown]
  - Dysgeusia [Unknown]
  - Drug ineffective [Unknown]
  - Malaise [Unknown]
  - Abdominal discomfort [Unknown]
